FAERS Safety Report 6834679-1 (Version None)
Quarter: 2010Q3

REPORT INFORMATION
  Report Type: 
  Country: None (occurrence: None)
  Receive Date: 20100712
  Receipt Date: 20070421
  Transmission Date: 20110219
  Serious: No
  Sender: FDA-Public Use
  Company Number: US-PFIZER INC-2007033466

PATIENT
  Sex: Female
  Weight: 60.33 kg

DRUGS (3)
  1. CHANTIX [Suspect]
     Indication: SMOKING CESSATION THERAPY
     Route: 048
     Dates: start: 20061031, end: 20061101
  2. KLONOPIN [Concomitant]
  3. GLUCOPHAGE [Concomitant]

REACTIONS (4)
  - DYSPNOEA [None]
  - INSOMNIA [None]
  - MALAISE [None]
  - NERVOUSNESS [None]
